FAERS Safety Report 15209181 (Version 1)
Quarter: 2018Q4

REPORT INFORMATION
  Report Type: Spontaneous
  Country: US (occurrence: US)
  Receive Date: 20180727
  Receipt Date: 20180727
  Transmission Date: 20190204
  Serious: Yes (Other)
  Sender: FDA-Public Use
  Company Number: US-BRACCO-2018US03043

PATIENT
  Age: 29 Year
  Sex: Female

DRUGS (2)
  1. E-Z GAS [Suspect]
     Active Substance: CITRIC ACID MONOHYDRATE\DIMETHICONE\SODIUM BICARBONATE
     Indication: X-RAY WITH CONTRAST UPPER GASTROINTESTINAL TRACT
     Dosage: UNK, SINGLE
     Route: 048
     Dates: start: 20180605, end: 20180605
  2. BARIUM SULPHATE [Suspect]
     Active Substance: BARIUM SULFATE
     Indication: GASTROINTESTINAL SCAN
     Dosage: 340 MG, SINGLE
     Route: 048
     Dates: start: 20180605, end: 20180605

REACTIONS (1)
  - Anaphylactic reaction [Recovered/Resolved]

NARRATIVE: CASE EVENT DATE: 20180605
